FAERS Safety Report 10085212 (Version 1)
Quarter: 2014Q2

REPORT INFORMATION
  Report Type: Spontaneous
  Country: GB (occurrence: GB)
  Receive Date: 20140417
  Receipt Date: 20140417
  Transmission Date: 20141212
  Serious: Yes (Disabling)
  Sender: FDA-Public Use
  Company Number: PHHY2014GB043202

PATIENT
  Age: 54 Year
  Sex: Female
  Weight: 99.78 kg

DRUGS (8)
  1. ATORVASTATIN [Suspect]
     Indication: HYPERCHOLESTEROLAEMIA
     Dosage: 60 MG, UNK
     Route: 048
     Dates: start: 20130201, end: 20140327
  2. AMLODIPINE [Concomitant]
  3. ATENOLOL [Concomitant]
  4. ESCITALOPRAM [Concomitant]
  5. LEVOTHYROXINE [Concomitant]
  6. OMEPRAZOLE [Concomitant]
  7. PARACETAMOL [Concomitant]
  8. TRAMADOL [Concomitant]

REACTIONS (8)
  - Disturbance in attention [Unknown]
  - Hypersomnia [Unknown]
  - Myalgia [Unknown]
  - Arthralgia [Unknown]
  - Fatigue [Unknown]
  - Asthenia [Unknown]
  - Paraesthesia [Unknown]
  - Amnesia [Unknown]
